FAERS Safety Report 9503077 (Version 4)
Quarter: 2013Q4

REPORT INFORMATION
  Report Type: Spontaneous
  Country: US (occurrence: US)
  Receive Date: 20130906
  Receipt Date: 20131030
  Transmission Date: 20140711
  Serious: Yes (Other)
  Sender: FDA-Public Use
  Company Number: US-PFIZER INC-2013255826

PATIENT
  Age: 65 Year
  Sex: Male

DRUGS (2)
  1. IBUPROFEN [Suspect]
     Indication: ANALGESIC THERAPY
     Dosage: 600 MG, 3X/DAY
     Route: 048
     Dates: end: 2010
  2. TYLENOL [Concomitant]
     Dosage: UNK
     Route: 065

REACTIONS (4)
  - Overdose [Unknown]
  - Haemorrhage [Unknown]
  - Faeces discoloured [Unknown]
  - Drug hypersensitivity [Unknown]
